FAERS Safety Report 6222097-9 (Version None)
Quarter: 2009Q2

REPORT INFORMATION
  Report Type: 
  Country: None (occurrence: None)
  Receive Date: 20090609
  Receipt Date: 20090528
  Transmission Date: 20091009
  Serious: Yes (Disabling, Other)
  Sender: FDA-Public Use
  Company Number: 09US001172

PATIENT
  Age: 51 Year
  Sex: Female
  Weight: 86.2 kg

DRUGS (5)
  1. PEXEVA [Suspect]
     Indication: DEPRESSION
     Dosage: 30 MG, QD, ORAL
     Route: 048
     Dates: start: 20040101
  2. LISINOPRIL [Concomitant]
  3. ATENOLOL [Concomitant]
  4. VIVELLE-DOT [Concomitant]
  5. ALCOHOL (ETHANOL) [Concomitant]

REACTIONS (12)
  - ALCOHOL USE [None]
  - BLOOD GLUCOSE DECREASED [None]
  - ENDOMETRIOSIS [None]
  - HYPERTENSION [None]
  - HYPOAESTHESIA [None]
  - HYPOTENSION [None]
  - LOSS OF CONSCIOUSNESS [None]
  - OVARIAN CYST [None]
  - PARAESTHESIA [None]
  - RETINAL VEIN OCCLUSION [None]
  - TACHYCARDIA [None]
  - TREMOR [None]
